FAERS Safety Report 4627198-4 (Version None)
Quarter: 2005Q1

REPORT INFORMATION
  Report Type: 
  Country: None (occurrence: None)
  Receive Date: 20050330
  Receipt Date: 20050322
  Transmission Date: 20050727
  Serious: Yes (Death)
  Sender: FDA-Public Use
  Company Number: HQWYE358925MAR05

PATIENT

DRUGS (3)
  1. RAPAMUNE [Suspect]
     Indication: PROPHYLAXIS
     Dosage: 4 MG LOADING DOSE IMMEDIATELY FOLLOWING STENT ORAL
     Route: 048
  2. CLOPIDOGREL BISULFATE [Concomitant]
  3. ASPIRIN [Concomitant]

REACTIONS (1)
  - CEREBROVASCULAR ACCIDENT [None]
